FAERS Safety Report 11639862 (Version 2)
Quarter: 2017Q4

REPORT INFORMATION
  Report Type: Spontaneous
  Country: US (occurrence: US)
  Receive Date: 20151019
  Receipt Date: 20171009
  Transmission Date: 20180320
  Serious: Yes (Other)
  Sender: FDA-Public Use
  Company Number: US-SUN PHARMACEUTICAL INDUSTRIES LTD-2015US-104615

PATIENT
  Age: 52 Year
  Sex: Female

DRUGS (11)
  1. MINOCYCLINE [Suspect]
     Active Substance: MINOCYCLINE\MINOCYCLINE HYDROCHLORIDE
     Indication: PNEUMONIA
     Dosage: UNK
     Route: 065
  2. VANCOMYCIN [Suspect]
     Active Substance: VANCOMYCIN
     Indication: RHODOCOCCUS INFECTION
     Dosage: UNK
     Route: 042
  3. MEROPENEM. [Suspect]
     Active Substance: MEROPENEM
     Indication: RHODOCOCCUS INFECTION
     Route: 042
  4. DOXYCYCLINE. [Suspect]
     Active Substance: DOXYCYCLINE
     Indication: PNEUMONIA
     Dosage: UNK UNK, DAILY
     Route: 048
  5. TIGECYCLINE. [Suspect]
     Active Substance: TIGECYCLINE
     Indication: RHODOCOCCUS INFECTION
  6. AZITHROMYCIN ANHYDROUS. [Suspect]
     Active Substance: AZITHROMYCIN ANHYDROUS
     Indication: RHODOCOCCUS INFECTION
     Dosage: UNK
     Route: 048
  7. DOXYCYCLINE. [Suspect]
     Active Substance: DOXYCYCLINE
     Indication: RHODOCOCCUS INFECTION
  8. LEVOFLOXACIN. [Suspect]
     Active Substance: LEVOFLOXACIN
     Indication: RHODOCOCCUS INFECTION
     Dosage: UNK
     Route: 048
  9. MEROPENEM. [Suspect]
     Active Substance: MEROPENEM
     Indication: RHODOCOCCUS INFECTION
     Dosage: UNK
     Route: 065
  10. LINEZOLIDE [Suspect]
     Active Substance: LINEZOLID
     Indication: EVIDENCE BASED TREATMENT
     Route: 065
  11. MINOCYCLINE [Suspect]
     Active Substance: MINOCYCLINE\MINOCYCLINE HYDROCHLORIDE
     Indication: RHODOCOCCUS INFECTION

REACTIONS (1)
  - Drug ineffective [Recovered/Resolved]
